FAERS Safety Report 22199607 (Version 1)
Quarter: 2023Q2

REPORT INFORMATION
  Report Type: Spontaneous
  Country: JP (occurrence: JP)
  Receive Date: 20230412
  Receipt Date: 20230412
  Transmission Date: 20230722
  Serious: Yes (Hospitalization, Other)
  Sender: FDA-Public Use
  Company Number: JP-BRISTOL-MYERS SQUIBB COMPANY-2022-139950

PATIENT
  Age: 71 Year
  Sex: Male
  Weight: 61 kg

DRUGS (11)
  1. YERVOY [Suspect]
     Active Substance: IPILIMUMAB
     Indication: Renal cell carcinoma
     Route: 041
     Dates: start: 20220202, end: 20220405
  2. OPDIVO [Suspect]
     Active Substance: NIVOLUMAB
     Indication: Renal cell carcinoma
     Route: 041
     Dates: start: 20220202, end: 20220428
  3. OPDIVO [Suspect]
     Active Substance: NIVOLUMAB
     Route: 041
     Dates: start: 20220512, end: 20220901
  4. CALONAL [Concomitant]
     Active Substance: ACETAMINOPHEN
     Indication: Product used for unknown indication
  5. LYRICA [Concomitant]
     Active Substance: PREGABALIN
     Indication: Product used for unknown indication
  6. LEVOTHYROXINE SODIUM [Concomitant]
     Active Substance: LEVOTHYROXINE SODIUM
     Indication: Product used for unknown indication
     Route: 048
  7. SODIUM CHLORIDE [Concomitant]
     Active Substance: SODIUM CHLORIDE
     Indication: Product used for unknown indication
     Route: 042
  8. NEXIUM [Concomitant]
     Active Substance: ESOMEPRAZOLE MAGNESIUM
     Indication: Product used for unknown indication
  9. SULFAMETHOXAZOLE\TRIMETHOPRIM [Concomitant]
     Active Substance: SULFAMETHOXAZOLE\TRIMETHOPRIM
     Indication: Product used for unknown indication
  10. BROTIZOLAM [Concomitant]
     Active Substance: BROTIZOLAM
     Indication: Product used for unknown indication
  11. TRAZODONE [Concomitant]
     Active Substance: TRAZODONE HYDROCHLORIDE
     Indication: Product used for unknown indication

REACTIONS (4)
  - Arthritis [Unknown]
  - Arthralgia [Recovering/Resolving]
  - Interstitial lung disease [Recovering/Resolving]
  - Condition aggravated [Recovering/Resolving]

NARRATIVE: CASE EVENT DATE: 20220405
